FAERS Safety Report 16944145 (Version 2)
Quarter: 2019Q4

REPORT INFORMATION
  Report Type: Spontaneous
  Country: US (occurrence: US)
  Receive Date: 20191022
  Receipt Date: 20191101
  Transmission Date: 20200122
  Serious: Yes (Death)
  Sender: FDA-Public Use
  Company Number: US-ACCORD-158512

PATIENT
  Age: 73 Year
  Sex: Male
  Weight: 77.2 kg

DRUGS (6)
  1. HYOSCYAMINE/HYOSCYAMINE HYDROBROMIDE/HYOSCYAMINE SULFATE [Concomitant]
     Indication: MUSCLE SPASMS
     Dosage: EVERY 4 HOURS PRN (WHEN REQUIRED)
     Route: 048
     Dates: start: 20191010, end: 20191013
  2. SENNA ALEXANDRINA [Concomitant]
     Active Substance: SENNA LEAF
     Indication: CONSTIPATION
     Dosage: 2 TABLETS?BID
     Route: 048
     Dates: start: 20190920, end: 20191013
  3. PARACETAMOL [Concomitant]
     Active Substance: ACETAMINOPHEN
     Indication: PAIN
     Dosage: EVERY 6 HOURS PRN (WHEN REQUIRED)
     Dates: start: 20191010, end: 20191013
  4. HALOPERIDOL. [Concomitant]
     Active Substance: HALOPERIDOL
     Indication: AGITATION
     Dosage: EVERY 6 HOURS PRN (WHEN REQUIRED)
     Route: 048
     Dates: start: 20191010, end: 20191013
  5. CLOZAPIN ACCORD [Suspect]
     Active Substance: CLOZAPINE
     Indication: PRODUCT USED FOR UNKNOWN INDICATION
     Route: 048
  6. CLONAZEPAM. [Concomitant]
     Active Substance: CLONAZEPAM
     Indication: AGITATION
     Dosage: BID
     Route: 048
     Dates: start: 20190923, end: 20191013

REACTIONS (2)
  - Parkinson^s disease [Fatal]
  - Sepsis [Fatal]
